FAERS Safety Report 5814586-3 (Version None)
Quarter: 2008Q3

REPORT INFORMATION
  Report Type: 
  Country: None (occurrence: None)
  Receive Date: 20080718
  Receipt Date: 20071022
  Transmission Date: 20090109
  Serious: No
  Sender: FDA-Public Use
  Company Number: US-KINGPHARMUSA00001-K200701362

PATIENT

DRUGS (1)
  1. LEVOXYL [Suspect]
     Indication: THYROIDECTOMY
     Dosage: 150 ^MG^, UNK

REACTIONS (5)
  - ANXIETY [None]
  - FEELING JITTERY [None]
  - INSOMNIA [None]
  - THYROID FUNCTION TEST ABNORMAL [None]
  - WEIGHT INCREASED [None]
